FAERS Safety Report 16766936 (Version 1)
Quarter: 2019Q3

REPORT INFORMATION
  Report Type: Spontaneous
  Country: US (occurrence: US)
  Receive Date: 20190903
  Receipt Date: 20190903
  Transmission Date: 20191005
  Serious: No
  Sender: FDA-Public Use
  Company Number: US-PFIZER INC-2019375739

PATIENT
  Age: 44 Year
  Sex: Female
  Weight: 77.11 kg

DRUGS (1)
  1. XELJANZ XR [Suspect]
     Active Substance: TOFACITINIB CITRATE
     Indication: RHEUMATOID ARTHRITIS
     Dosage: 11 MG, DAILY
     Route: 048
     Dates: start: 201806

REACTIONS (6)
  - Psoriasis [Unknown]
  - Nasopharyngitis [Unknown]
  - Viral upper respiratory tract infection [Unknown]
  - Cough [Unknown]
  - Disease recurrence [Unknown]
  - Blood cholesterol increased [Unknown]
